FAERS Safety Report 6929986-8 (Version None)
Quarter: 2010Q3

REPORT INFORMATION
  Report Type: 
  Country: None (occurrence: None)
  Receive Date: 20100818
  Receipt Date: 20100809
  Transmission Date: 20110219
  Serious: Yes (Other)
  Sender: FDA-Public Use
  Company Number: JP-ASTRAZENECA-2009SE16976

PATIENT
  Age: 46 Year
  Sex: Female
  Weight: 59 kg

DRUGS (6)
  1. ZOLADEX [Suspect]
     Indication: BREAST CANCER
     Route: 058
     Dates: start: 20080208, end: 20090516
  2. MS ONSHIPPU [Concomitant]
     Dosage: 1 SHEET/DAY, TWO TIMES A DAY
     Route: 062
     Dates: start: 20080307, end: 20080403
  3. HIRUDOID [Concomitant]
     Dosage: OPTIMAL DOSE 2-3 TIMES/DAY
     Route: 003
     Dates: start: 20081114, end: 20100520
  4. BIOFERMIN [Concomitant]
     Route: 048
     Dates: start: 20090101, end: 20090106
  5. JUVELA N [Concomitant]
     Route: 048
     Dates: start: 20090109, end: 20090510
  6. VOLTAREN [Concomitant]
     Dosage: 1 SHEET/DAY
     Route: 062
     Dates: start: 20090410, end: 20100325

REACTIONS (1)
  - APTYALISM [None]
